FAERS Safety Report 18582675 (Version 1)
Quarter: 2020Q4

REPORT INFORMATION
  Report Type: Other
  Country: IT (occurrence: IT)
  Receive Date: 20201205
  Receipt Date: 20201205
  Transmission Date: 20210114
  Serious: Yes (Death)
  Sender: FDA-Public Use
  Company Number: IT-ROCHE-2725668

PATIENT

DRUGS (4)
  1. CYCLOPHOSPHAMIDE. [Suspect]
     Active Substance: CYCLOPHOSPHAMIDE
     Indication: PROPHYLAXIS AGAINST GRAFT VERSUS HOST DISEASE
     Dosage: ON DAY 13 AND 14
     Route: 065
  2. MYCOPHENOLATE MOFETIL. [Suspect]
     Active Substance: MYCOPHENOLATE MOFETIL
     Indication: PROPHYLAXIS AGAINST GRAFT VERSUS HOST DISEASE
     Dosage: FROM DAY 15, THEN DOSES MODIFIED MMF FROM DAY 11 AND ORAL 15 MG/KG 2 OR 3 TIMES PER DAY UNTIL DAY 13
     Route: 065
  3. TACROLIMUS. [Suspect]
     Active Substance: TACROLIMUS
     Indication: PROPHYLAXIS AGAINST GRAFT VERSUS HOST DISEASE
     Dosage: DOSAGES WERE ADJUSTED TO MAINTAIN SERUM LEVELS WITHIN THERAPEUTIC RANGES (TACROLIMUS) BETWEEN 5 AND
     Route: 042
  4. CYCLOSPORINE. [Suspect]
     Active Substance: CYCLOSPORINE
     Indication: PROPHYLAXIS AGAINST GRAFT VERSUS HOST DISEASE
     Dosage: CONTINUOUS INFUSION OR BOLUS INFUSION,?DOSAGES WERE ADJUSTED TO MAINTAIN SERUM LEVELS WITHIN THERAPE
     Route: 042

REACTIONS (2)
  - Neoplasm [Fatal]
  - Infection [Fatal]
